FAERS Safety Report 10280708 (Version 2)
Quarter: 2014Q3

REPORT INFORMATION
  Report Type: Spontaneous
  Country: JP (occurrence: JP)
  Receive Date: 20140707
  Receipt Date: 20140707
  Transmission Date: 20150326
  Serious: Yes (Life-Threatening, Hospitalization, Other)
  Sender: FDA-Public Use
  Company Number: JP-PFIZER INC-2014170295

PATIENT
  Age: 7 Year
  Sex: Female
  Weight: 22.3 kg

DRUGS (4)
  1. ALEVAIRE [Concomitant]
     Indication: ASTHMA
     Dosage: 1 ML, 1X/DAY
     Dates: start: 20140619
  2. VENETLIN [Concomitant]
     Active Substance: ALBUTEROL SULFATE
     Indication: ASTHMA
     Dosage: 0.4 ML, 1X/DAY
     Dates: start: 20140619
  3. SOLITA T [Concomitant]
     Indication: FLUID REPLACEMENT
     Dosage: 200 ML, 1X/DAY
     Route: 041
     Dates: start: 20140619
  4. SOLU-MEDROL [Suspect]
     Active Substance: METHYLPREDNISOLONE SODIUM SUCCINATE
     Indication: ASTHMA
     Dosage: 20 MG, 1X/DAY
     Route: 041
     Dates: start: 20140619, end: 20140619

REACTIONS (1)
  - Anaphylactic shock [Recovered/Resolved]

NARRATIVE: CASE EVENT DATE: 20140619
